FAERS Safety Report 24040493 (Version 1)
Quarter: 2024Q3

REPORT INFORMATION
  Report Type: Spontaneous
  Country: US (occurrence: US)
  Receive Date: 20240702
  Receipt Date: 20240702
  Transmission Date: 20241017
  Serious: No
  Sender: PERRIGO
  Company Number: US-PERRIGO-24US000799

PATIENT
  Sex: Female

DRUGS (1)
  1. MICONAZOLE 1 [Suspect]
     Active Substance: MICONAZOLE NITRATE
     Indication: Vulvovaginal mycotic infection
     Dosage: UNKNOWN, UNKNOWN
     Route: 061

REACTIONS (2)
  - Vulvovaginal burning sensation [Unknown]
  - Vulvovaginal pruritus [Unknown]
